FAERS Safety Report 10746478 (Version 1)
Quarter: 2015Q1

REPORT INFORMATION
  Report Type: Report from Study
  Country: ES (occurrence: ES)
  Receive Date: 20150128
  Receipt Date: 20150128
  Transmission Date: 20150721
  Serious: Yes (Other)
  Sender: FDA-Public Use
  Company Number: ES-ABBVIE-15P-144-1337266-00

PATIENT
  Age: 72 Year
  Sex: Male

DRUGS (1)
  1. DUODOPA [Suspect]
     Active Substance: CARBIDOPA\LEVODOPA
     Indication: PARKINSON^S DISEASE
     Dosage: MORNING DOSE: 13 ML; CONTINUOUS DOSE: 5.4; EXTRA DOSE: 3
     Route: 050
     Dates: start: 20120706

REACTIONS (3)
  - Hip fracture [Unknown]
  - Medical device complication [Unknown]
  - Excessive granulation tissue [Unknown]

NARRATIVE: CASE EVENT DATE: 201501
